FAERS Safety Report 7463314-7 (Version None)
Quarter: 2011Q2

REPORT INFORMATION
  Report Type: 
  Country: None (occurrence: None)
  Receive Date: 20110506
  Receipt Date: 20110426
  Transmission Date: 20111010
  Serious: Yes (Death, Other)
  Sender: FDA-Public Use
  Company Number: US-CELGENEUS-163-21880-11042764

PATIENT
  Age: 82 Year
  Sex: Female

DRUGS (14)
  1. SENNA [Concomitant]
     Route: 065
  2. FAMOTIDINE [Concomitant]
     Route: 065
  3. OXYCODONE HCL AND ACETAMINOPHEN [Concomitant]
     Route: 065
  4. HALOPERIDOL [Concomitant]
     Route: 065
  5. BISACODYL [Concomitant]
     Route: 065
  6. REVLIMID [Suspect]
     Indication: MULTIPLE MYELOMA
     Dosage: 10 MILLIGRAM
     Route: 048
     Dates: start: 20100401, end: 20100502
  7. FENTANYL [Concomitant]
     Route: 065
  8. DOCUSATE [Concomitant]
     Route: 065
  9. LACTULOSE [Concomitant]
     Route: 065
  10. SIMVASTATIN [Concomitant]
     Route: 065
  11. MORPHINE [Concomitant]
     Route: 065
  12. LORAZEPAM [Concomitant]
     Route: 065
  13. PROCHLORPERAZINE TAB [Concomitant]
     Route: 065
  14. GLIPIZIDE [Concomitant]
     Route: 065

REACTIONS (2)
  - PANCYTOPENIA [None]
  - MULTIPLE MYELOMA [None]
